FAERS Safety Report 5404654-2 (Version None)
Quarter: 2007Q3

REPORT INFORMATION
  Report Type: 
  Country: None (occurrence: None)
  Receive Date: 20070802
  Receipt Date: 20070727
  Transmission Date: 20080115
  Serious: Yes (Death, Hospitalization)
  Sender: FDA-Public Use
  Company Number: GB-MERCK-0707GBR00078

PATIENT
  Age: 40 Year
  Sex: Female

DRUGS (11)
  1. DECADRON [Suspect]
     Indication: HODGKIN'S DISEASE
     Route: 048
  2. DOXORUBICIN [Suspect]
     Indication: HODGKIN'S DISEASE
     Route: 065
  3. BLEOMYCIN [Suspect]
     Indication: HODGKIN'S DISEASE
     Route: 065
  4. CISPLATIN [Suspect]
     Indication: HODGKIN'S DISEASE
     Route: 065
  5. CYCLOPHOSPHAMIDE [Suspect]
     Indication: HODGKIN'S DISEASE
     Route: 065
  6. CYTARABINE [Suspect]
     Indication: HODGKIN'S DISEASE
     Route: 065
  7. ETOPOSIDE [Suspect]
     Indication: HODGKIN'S DISEASE
     Route: 065
  8. METHOTREXATE [Suspect]
     Indication: HODGKIN'S DISEASE
     Route: 065
  9. PREDNISONE TAB [Suspect]
     Indication: HODGKIN'S DISEASE
     Route: 065
  10. PROCARBAZINE HYDROCHLORIDE [Suspect]
     Indication: HODGKIN'S DISEASE
     Route: 065
  11. VINCRISTINE SULFATE [Suspect]
     Indication: HODGKIN'S DISEASE
     Route: 065

REACTIONS (3)
  - FEBRILE NEUTROPENIA [None]
  - MALIGNANT NEOPLASM PROGRESSION [None]
  - METASTASIS [None]
